FAERS Safety Report 16361427 (Version 1)
Quarter: 2019Q2

REPORT INFORMATION
  Report Type: Spontaneous
  Country: US (occurrence: US)
  Receive Date: 20190528
  Receipt Date: 20190528
  Transmission Date: 20190711
  Serious: No
  Sender: FDA-Public Use
  Company Number: US-009507513-1905USA011306

PATIENT
  Age: 66 Year
  Sex: Female

DRUGS (2)
  1. XGEVA [Concomitant]
     Active Substance: DENOSUMAB
     Dosage: EVERY 6 WEEKS
  2. KEYTRUDA [Suspect]
     Active Substance: PEMBROLIZUMAB
     Indication: LUNG ADENOCARCINOMA STAGE IV
     Dosage: 200MG EVERY THREE WEEKS; ROUTE OF ADMINISTRATION: THROUGH A PORT IN HER CHEST
     Route: 042
     Dates: start: 201803

REACTIONS (2)
  - Upper respiratory tract congestion [Not Recovered/Not Resolved]
  - Sinus congestion [Not Recovered/Not Resolved]

NARRATIVE: CASE EVENT DATE: 201901
